FAERS Safety Report 7299973-1 (Version None)
Quarter: 2011Q1

REPORT INFORMATION
  Report Type: 
  Country: None (occurrence: None)
  Receive Date: 20110217
  Receipt Date: 20110207
  Transmission Date: 20110831
  Serious: Yes (Disabling)
  Sender: FDA-Public Use
  Company Number: GB-PFIZER INC-2008151447

PATIENT
  Age: 73 Year
  Sex: Female

DRUGS (2)
  1. CELECOXIB [Suspect]
     Indication: OSTEOARTHRITIS
     Dosage: 100 MG, 2X/DAY
     Route: 048
  2. COD-LIVER OIL [Concomitant]
     Indication: OSTEOARTHRITIS

REACTIONS (1)
  - RETINAL VEIN OCCLUSION [None]
